FAERS Safety Report 9471105 (Version 1)
Quarter: 2013Q3

REPORT INFORMATION
  Report Type: Spontaneous
  Country: US (occurrence: US)
  Receive Date: 20130822
  Receipt Date: 20130822
  Transmission Date: 20140515
  Serious: No
  Sender: FDA-Public Use
  Company Number: US-B.I. PHARMACEUTICALS,INC./RIDGEFIELD-2013-BI-25105BP

PATIENT
  Age: 57 Year
  Sex: Female
  Weight: 94 kg

DRUGS (19)
  1. SPIRIVA [Suspect]
     Indication: CHRONIC OBSTRUCTIVE PULMONARY DISEASE
     Dosage: 18 MCG
     Route: 055
     Dates: start: 2009
  2. COMBIVENT [Suspect]
     Indication: CHRONIC OBSTRUCTIVE PULMONARY DISEASE
     Dosage: STRENGTH: 18 MCG / 103 MCG; DAILY DOSE: 144 MCG / 824 MCG
     Route: 055
     Dates: start: 2009
  3. AMARYL [Concomitant]
     Indication: DIABETES MELLITUS
     Dosage: 4 MG
     Route: 048
  4. TRAZODONE [Concomitant]
     Indication: SLEEP DISORDER
     Dosage: 100 MG
     Route: 048
  5. HYDROCODONE [Concomitant]
     Indication: INTERVERTEBRAL DISC DEGENERATION
     Dosage: STRENGTH: 10 MG / 325 MG; DAILY DOSE: 30 MG / 975 MG
     Route: 048
  6. NOVOLOG INSULIN [Concomitant]
     Indication: DIABETES MELLITUS
     Dosage: STRENGTH: SLIDING SCALE;
     Route: 058
  7. PRILOSEC [Concomitant]
     Indication: GASTROOESOPHAGEAL REFLUX DISEASE
     Dosage: 20 MG
     Route: 048
  8. SIMVASTATIN [Concomitant]
     Indication: BLOOD CHOLESTEROL INCREASED
     Dosage: 20 MG
     Route: 048
  9. CLONIDINE [Concomitant]
     Indication: HYPERTENSION
     Dosage: 0.3 MG
     Route: 048
  10. LISINOPRIL [Concomitant]
     Indication: HYPERTENSION
     Dosage: 40 MG
     Route: 048
  11. ADVAIR [Concomitant]
     Indication: CHRONIC OBSTRUCTIVE PULMONARY DISEASE
     Dosage: 2 PUF
     Route: 055
  12. MIRALAX [Concomitant]
     Indication: IRRITABLE BOWEL SYNDROME
     Dosage: STRENGTH: 1 CAPFULL; DAILY DOSE: 1 CAPFULL
     Route: 048
  13. BENTYL [Concomitant]
     Indication: IRRITABLE BOWEL SYNDROME
     Dosage: 30 MG
     Route: 048
  14. CELEXA [Concomitant]
     Indication: DEPRESSION
     Dosage: 40 MG
     Route: 048
  15. LANTUS INSULIN [Concomitant]
     Indication: DIABETES MELLITUS
     Dosage: STRENGTH: 80 UNITS; DAILY DOSE: 80 UNITS
     Route: 058
  16. LACTULOSE SOLUTION [Concomitant]
     Indication: IRRITABLE BOWEL SYNDROME
     Dosage: STRENGTH: 2 TBSP;
     Route: 048
  17. SYNTHROID [Concomitant]
     Indication: THYROIDECTOMY
     Dosage: 200 MCG
     Route: 048
  18. DOXEPIN [Concomitant]
     Indication: SLEEP DISORDER
     Dosage: 100 MG
     Route: 048
  19. DUONEB [Concomitant]
     Indication: CHRONIC OBSTRUCTIVE PULMONARY DISEASE
     Dosage: STRENGTH: 0.5 MG / 3 MG; DAILY DOSE: 2 MG / 12 MG
     Route: 055

REACTIONS (2)
  - Fall [Recovered/Resolved]
  - Cartilage injury [Not Recovered/Not Resolved]
